FAERS Safety Report 5042042-1 (Version None)
Quarter: 2006Q2

REPORT INFORMATION
  Report Type: 
  Country: None (occurrence: None)
  Receive Date: 20060627
  Receipt Date: 20060612
  Transmission Date: 20061013
  Serious: Yes (Other)
  Sender: FDA-Public Use
  Company Number: 2006074538

PATIENT
  Age: 55 Year
  Sex: Female
  Weight: 56.6996 kg

DRUGS (3)
  1. NEURONTIN [Suspect]
     Indication: EYE DISORDER
     Dosage: SEE IMAGE, ORAL
     Route: 048
     Dates: start: 20050101
  2. NEURONTIN [Suspect]
     Indication: EYE PAIN
     Dosage: SEE IMAGE, ORAL
     Route: 048
     Dates: start: 20050101
  3. TAMOXIFEN CITRATE [Concomitant]

REACTIONS (13)
  - ATONIC SEIZURES [None]
  - BLOOD OESTROGEN DECREASED [None]
  - CONDITION AGGRAVATED [None]
  - CONVULSION [None]
  - DIZZINESS [None]
  - DRUG EFFECT DECREASED [None]
  - FALL [None]
  - GRAND MAL CONVULSION [None]
  - HEAD INJURY [None]
  - PETIT MAL EPILEPSY [None]
  - THERAPEUTIC RESPONSE UNEXPECTED [None]
  - THERAPEUTIC RESPONSE UNEXPECTED WITH DRUG SUBSTITUTION [None]
  - VICTIM OF CRIME [None]
